FAERS Safety Report 5939411-1 (Version None)
Quarter: 2008Q4

REPORT INFORMATION
  Report Type: 
  Country: None (occurrence: None)
  Receive Date: 20081103
  Receipt Date: 20081023
  Transmission Date: 20090506
  Serious: Yes (Other)
  Sender: FDA-Public Use
  Company Number: AU-PFIZER INC-2008090137

PATIENT
  Sex: Female

DRUGS (1)
  1. SYNAREL [Suspect]

REACTIONS (2)
  - AMNESIA [None]
  - CONVULSION [None]
